FAERS Safety Report 14209903 (Version 1)
Quarter: 2017Q4

REPORT INFORMATION
  Report Type: Spontaneous
  Country: US (occurrence: US)
  Receive Date: 20171121
  Receipt Date: 20171121
  Transmission Date: 20180321
  Serious: Yes (Life-Threatening, Hospitalization, Other)
  Sender: FDA-Public Use
  Company Number: None

PATIENT
  Age: 86 Year
  Sex: Male
  Weight: 78 kg

DRUGS (1)
  1. NIVOLUMAB [Suspect]
     Active Substance: NIVOLUMAB
     Dates: start: 20171024, end: 20171107

REACTIONS (6)
  - Muscular weakness [None]
  - Asthenia [None]
  - Condition aggravated [None]
  - Eyelid ptosis [None]
  - Vision blurred [None]
  - Neck pain [None]

NARRATIVE: CASE EVENT DATE: 20171117
